FAERS Safety Report 4662816-6 (Version None)
Quarter: 2005Q2

REPORT INFORMATION
  Report Type: 
  Country: None (occurrence: None)
  Receive Date: 20050512
  Receipt Date: 20050425
  Transmission Date: 20051028
  Serious: Yes (Death, Other)
  Sender: FDA-Public Use
  Company Number: USA050496487

PATIENT
  Age: 27 Year
  Sex: Male
  Weight: 82 kg

DRUGS (6)
  1. ZYPREXA [Suspect]
     Indication: BIPOLAR DISORDER
     Dosage: 10 MG/1 DAY
     Route: 048
     Dates: start: 20041201
  2. ZYPREXA [Suspect]
     Indication: PSYCHOTIC DISORDER
     Dosage: 10 MG/1 DAY
     Route: 048
     Dates: start: 20041201
  3. EFFEXOR [Concomitant]
  4. LIPITOR [Concomitant]
  5. LORAZEPAM [Concomitant]
  6. NEURONTIN [Concomitant]

REACTIONS (3)
  - COMPLETED SUICIDE [None]
  - DEPRESSED MOOD [None]
  - FAMILY STRESS [None]
